FAERS Safety Report 4935292-3 (Version None)
Quarter: 2006Q1

REPORT INFORMATION
  Report Type: 
  Country: None (occurrence: None)
  Receive Date: 20060302
  Receipt Date: 20060215
  Transmission Date: 20060701
  Serious: Yes (Hospitalization, Other)
  Sender: FDA-Public Use
  Company Number: USA050495705

PATIENT
  Age: 45 Year
  Sex: Female
  Weight: 73.5 kg

DRUGS (1)
  1. CYMBALTA [Suspect]
     Indication: FIBROMYALGIA
     Dosage: 60 MG, DAILY (1/D)
     Dates: start: 20050106

REACTIONS (5)
  - BLINDNESS UNILATERAL [None]
  - PHOTOPSIA [None]
  - RETINAL DETACHMENT [None]
  - RETINAL TEAR [None]
  - VISION BLURRED [None]
